FAERS Safety Report 7666681-4 (Version None)
Quarter: 2011Q3

REPORT INFORMATION
  Report Type: 
  Country: None (occurrence: None)
  Receive Date: 20110806
  Receipt Date: 20110628
  Transmission Date: 20111222
  Serious: No
  Sender: FDA-Public Use
  Company Number: US-ABBOTT-11P-163-0835180-00

PATIENT
  Sex: Male
  Weight: 97.61 kg

DRUGS (8)
  1. ASPIRIN [Concomitant]
     Indication: PRODUCT USED FOR UNKNOWN INDICATION
  2. NIASPAN [Suspect]
     Dates: start: 20110601
  3. NEXIUM [Concomitant]
     Indication: GASTROOESOPHAGEAL REFLUX DISEASE
  4. NIASPAN [Suspect]
     Indication: HIGH DENSITY LIPOPROTEIN DECREASED
     Dates: start: 20110401, end: 20110601
  5. SYNTHROID [Concomitant]
     Indication: THYROID DISORDER
  6. OSTEO BI-FLEX [Concomitant]
     Indication: ARTHROPATHY
  7. LOVAZA [Concomitant]
     Indication: PRODUCT USED FOR UNKNOWN INDICATION
  8. DIOVAN HCT [Concomitant]
     Indication: BLOOD PRESSURE
     Dosage: 160/12.5MG

REACTIONS (4)
  - JOINT SWELLING [None]
  - PAIN [None]
  - ERYTHEMA [None]
  - FLUSHING [None]
